FAERS Safety Report 20840077 (Version 1)
Quarter: 2022Q2

REPORT INFORMATION
  Report Type: Spontaneous
  Country: US (occurrence: US)
  Receive Date: 20220517
  Receipt Date: 20220517
  Transmission Date: 20220721
  Serious: Yes (Hospitalization, Other)
  Sender: FDA-Public Use
  Company Number: US-PFIZER INC-2015046782

PATIENT
  Age: 76 Year
  Sex: Female

DRUGS (3)
  1. OXALIPLATIN [Suspect]
     Active Substance: OXALIPLATIN
     Indication: Colon cancer metastatic
     Dosage: CYCLIC
  2. BEVACIZUMAB [Suspect]
     Active Substance: BEVACIZUMAB
     Indication: Colon cancer metastatic
     Dosage: CYCLIC
  3. CAPECITABINE [Concomitant]
     Active Substance: CAPECITABINE
     Indication: Colon cancer metastatic
     Dosage: UNK, CYCLIC

REACTIONS (2)
  - Disseminated intravascular coagulation [Recovered/Resolved]
  - Autoimmune haemolytic anaemia [Recovered/Resolved]
